FAERS Safety Report 15664778 (Version 1)
Quarter: 2018Q4

REPORT INFORMATION
  Report Type: Spontaneous
  Country: US (occurrence: US)
  Receive Date: 20181128
  Receipt Date: 20181128
  Transmission Date: 20190205
  Serious: Yes (Other)
  Sender: FDA-Public Use
  Company Number: None

PATIENT
  Age: 71 Year
  Sex: Female

DRUGS (8)
  1. COENZYME Q-10 [Concomitant]
  2. LEVOTHYROXINE. [Concomitant]
     Active Substance: LEVOTHYROXINE
  3. SCHISANDRA [Concomitant]
  4. ASHWAGANDHA [Concomitant]
     Active Substance: HERBALS
  5. FASLODEX [Concomitant]
     Active Substance: FULVESTRANT
  6. MILK THISTLE XTRA [Concomitant]
  7. CAPECITABINE. [Suspect]
     Active Substance: CAPECITABINE
     Indication: HEPATIC CANCER
     Route: 048
     Dates: start: 20170113, end: 20181128
  8. MARIJUANA [Concomitant]
     Active Substance: CANNABIS SATIVA SUBSP. INDICA TOP

REACTIONS (1)
  - Disease progression [None]

NARRATIVE: CASE EVENT DATE: 20181128
